FAERS Safety Report 6546013-5 (Version None)
Quarter: 2010Q1

REPORT INFORMATION
  Report Type: 
  Country: None (occurrence: None)
  Receive Date: 20100121
  Receipt Date: 20100121
  Transmission Date: 20100710
  Serious: Yes (Hospitalization)
  Sender: FDA-Public Use
  Company Number: None

PATIENT
  Age: 71 Year
  Sex: Male

DRUGS (11)
  1. FENOFIBRATE [Suspect]
     Indication: HYPERCHOLESTEROLAEMIA
     Dosage: 12/1 OR 2 UNTIL ADMISSION 12/4
  2. CRESTOR [Concomitant]
  3. CYMBALTA [Concomitant]
  4. POT CHLOR [Concomitant]
  5. ALPRAZOLAM [Concomitant]
  6. ADVAIR DISKUS 100/50 [Concomitant]
  7. ROPINIROLE [Concomitant]
  8. SPIRIVA [Concomitant]
  9. CARVEDILOL [Concomitant]
  10. NEXIUM [Concomitant]
  11. PLAVIX [Concomitant]

REACTIONS (5)
  - ABDOMINAL DISTENSION [None]
  - ABDOMINAL PAIN [None]
  - ABDOMINAL TENDERNESS [None]
  - GALLBLADDER DISORDER [None]
  - WHITE BLOOD CELL COUNT INCREASED [None]
